FAERS Safety Report 7467177-5 (Version None)
Quarter: 2011Q2

REPORT INFORMATION
  Report Type: 
  Country: None (occurrence: None)
  Receive Date: 20110509
  Receipt Date: 20101027
  Transmission Date: 20111010
  Serious: No
  Sender: FDA-Public Use
  Company Number: US-ALEXION-A201001378

PATIENT
  Sex: Female

DRUGS (6)
  1. ZANTAC                             /00550802/ [Concomitant]
     Dosage: UNK
  2. SOTALOL HCL [Concomitant]
     Dosage: UNK
  3. SOLIRIS [Suspect]
     Indication: PAROXYSMAL NOCTURNAL HAEMOGLOBINURIA
     Dosage: UNK
     Route: 042
  4. FOLIC ACID [Concomitant]
     Dosage: 1 MG, UNK
  5. CLARITIN                           /00917501/ [Concomitant]
     Dosage: UNK
  6. NEURONTIN [Concomitant]
     Dosage: UNK
     Route: 048

REACTIONS (4)
  - BLOOD LACTATE DEHYDROGENASE INCREASED [None]
  - HAEMOGLOBIN DECREASED [None]
  - DYSPNOEA [None]
  - ATRIAL FIBRILLATION [None]
